FAERS Safety Report 7961402-X (Version None)
Quarter: 2011Q4

REPORT INFORMATION
  Report Type: 
  Country: None (occurrence: None)
  Receive Date: 20111202
  Receipt Date: 20111118
  Transmission Date: 20120403
  Serious: Yes (Other)
  Sender: FDA-Public Use
  Company Number: TPA2011A04051

PATIENT
  Age: 82 Year
  Sex: Male

DRUGS (2)
  1. ACTOS [Suspect]
     Indication: TYPE 2 DIABETES MELLITUS
     Dosage: 45 MG, 1 IN 1 D, 30 MG, 1 IN 1 D
     Dates: start: 20091201
  2. ACTOS [Suspect]
     Indication: TYPE 2 DIABETES MELLITUS
     Dosage: 45 MG, 1 IN 1 D, 30 MG, 1 IN 1 D
     Dates: end: 20110801

REACTIONS (1)
  - BLADDER TRANSITIONAL CELL CARCINOMA [None]
